FAERS Safety Report 6910549-5 (Version None)
Quarter: 2010Q3

REPORT INFORMATION
  Report Type: 
  Country: None (occurrence: None)
  Receive Date: 20100806
  Receipt Date: 20100716
  Transmission Date: 20110219
  Serious: Yes (Death)
  Sender: FDA-Public Use
  Company Number: US-ROCHE-684273

PATIENT
  Sex: Female
  Weight: 98.9 kg

DRUGS (3)
  1. XELODA [Suspect]
     Indication: BREAST CANCER
     Dosage: TAKEN FOR 2 WEEKS
     Route: 048
     Dates: start: 20091218, end: 20100101
  2. XELODA [Suspect]
     Dosage: DOSAGE REDUCED
     Route: 048
     Dates: start: 20100113, end: 20100127
  3. XELODA [Suspect]
     Dosage: LOWERED DOSE
     Route: 048
     Dates: start: 20100203, end: 20100217

REACTIONS (2)
  - DEATH [None]
  - PALMAR-PLANTAR ERYTHRODYSAESTHESIA SYNDROME [None]
